FAERS Safety Report 5809063-X (Version None)
Quarter: 2008Q3

REPORT INFORMATION
  Report Type: 
  Country: None (occurrence: None)
  Receive Date: 20080714
  Receipt Date: 20080704
  Transmission Date: 20090109
  Serious: Yes (Other)
  Sender: FDA-Public Use
  Company Number: CN-PURDUE-GBR_2008_0004211

PATIENT
  Age: 88 Year
  Sex: Female

DRUGS (1)
  1. MORPHINE [Suspect]
     Indication: DRUG USE FOR UNKNOWN INDICATION
     Dosage: 110 MG, SINGLE
     Route: 065

REACTIONS (5)
  - DRUG EFFECT PROLONGED [None]
  - MIOSIS [None]
  - RESPIRATORY DEPRESSION [None]
  - SOMNOLENCE [None]
  - WRONG DRUG ADMINISTERED [None]
